FAERS Safety Report 25055051 (Version 1)
Quarter: 2025Q1

REPORT INFORMATION
  Report Type: Spontaneous
  Country: IT (occurrence: IT)
  Receive Date: 20250308
  Receipt Date: 20250308
  Transmission Date: 20250409
  Serious: Yes (Other)
  Sender: ABBVIE
  Company Number: None

PATIENT
  Age: 85 Year
  Sex: Female
  Weight: 60 kg

DRUGS (1)
  1. CITALOPRAM HYDROBROMIDE [Suspect]
     Active Substance: CITALOPRAM HYDROBROMIDE
     Indication: Depression
     Dosage: 1 TABLET OF 20 MG SEROPRAM IN THE EVENING, STRENGTH: 20 MG
     Route: 048

REACTIONS (2)
  - Alcohol interaction [Recovered/Resolved]
  - Hallucination [Recovered/Resolved]
